FAERS Safety Report 4391329-4 (Version None)
Quarter: 2004Q2

REPORT INFORMATION
  Report Type: 
  Country: None (occurrence: None)
  Receive Date: 20040621
  Receipt Date: 20031104
  Transmission Date: 20050107
  Serious: Yes (Other)
  Sender: FDA-Public Use
  Company Number: USA-2003-0010628

PATIENT
  Sex: Female

DRUGS (5)
  1. OXYCONTIN [Suspect]
     Indication: PAIN
  2. OXYIR (OXYCODONE HYDROCHLORIDE) [Suspect]
     Indication: PAIN
  3. TYLOX (PARACETAMOL, OXYCODONE HYDROCHLORIDE, OX) [Suspect]
     Indication: PAIN
  4. ELAVIL [Concomitant]
  5. SYNTHROID [Concomitant]

REACTIONS (2)
  - DRUG ABUSER [None]
  - DRUG DEPENDENCE [None]
